FAERS Safety Report 9275915 (Version 1)
Quarter: 2013Q2

REPORT INFORMATION
  Report Type: Spontaneous
  Country: US (occurrence: US)
  Receive Date: 20130507
  Receipt Date: 20130507
  Transmission Date: 20140414
  Serious: Yes (Other)
  Sender: FDA-Public Use
  Company Number: US-JNJFOC-2003143510US

PATIENT
  Age: 37 Year
  Sex: Female

DRUGS (13)
  1. MOTRIN [Suspect]
     Indication: HEADACHE
     Dates: end: 2001
  2. VIOXX [Suspect]
     Indication: PAIN
     Dosage: DAILY DOSE TEXT: 25 MG, 1 TO 2 TABS QD, PRN
     Route: 048
     Dates: start: 19990824, end: 2000
  3. VIOXX [Suspect]
     Indication: PAIN
     Dosage: DAILY DOSE TEXT: 12.5 MG, 1 TO 2 TABS QD, PRN
     Route: 048
     Dates: start: 19990802, end: 199908
  4. VIOXX [Suspect]
     Indication: PAIN
     Dosage: FREQUENCY TEXT: QD DAILY DOSE TEXT: 25 MILLIGRAM, QD DAILY DOSE QTY: 25 MG
     Route: 048
     Dates: start: 20000914, end: 2001
  5. ULTRAM [Suspect]
     Indication: PAIN
     Dosage: FREQUENCY TEXT: PRN DAILY DOSE TEXT: 50 MILLIGRAM, PRN
     Route: 048
     Dates: start: 19990609
  6. ULTRAM [Suspect]
     Indication: PAIN
     Dosage: DAILY DOSE TEXT: 50 MG, Q 6 HRS, PRN
     Route: 048
     Dates: start: 20000714
  7. KETOROLAC [Suspect]
     Indication: PAIN
     Dosage: FREQUENCY TEXT: QID DAILY DOSE TEXT: 10 MILLIGRAM, QID DAILY DOSE QTY: 40 MG
     Route: 048
     Dates: start: 20010213
  8. VICOPROFEN [Suspect]
     Indication: PAIN
     Dosage: FREQUENCY TEXT: TID DAILY DOSE TEXT: 1 TAB, Q 8 HRS
     Route: 048
     Dates: start: 20010327
  9. HYDROCODONE W/ACETAMINOPHEN [Suspect]
     Indication: PAIN
     Dosage: DAILY DOSE TEXT: 5/500, Q 6 HRS, PRN
     Route: 048
     Dates: start: 20010420
  10. HYDROCODONE W/ACETAMINOPHEN [Suspect]
     Indication: PAIN
     Dosage: DAILY DOSE TEXT: 5/500, Q 4 TO 6 HRS, PRN
     Route: 048
     Dates: start: 20010416
  11. ACETAMINOPHEN W/CODEINE [Suspect]
     Indication: PAIN
     Dosage: DAILY DOSE TEXT: 1 TO 2 TABS Q 6 HRS, PRN
     Route: 048
     Dates: start: 20010521
  12. CELEBREX [Suspect]
     Indication: PAIN
     Dosage: FREQUENCY TEXT: BID DAILY DOSE TEXT: 100 MILLIGRAM, BID DAILY DOSE QTY: 200 MG
     Route: 048
     Dates: start: 19990511, end: 199906
  13. ACETAMINOPHEN [Suspect]
     Indication: HEADACHE
     Dates: end: 2001

REACTIONS (2)
  - Nephrotic syndrome [Unknown]
  - Oedema [Unknown]
